FAERS Safety Report 9214207 (Version 1)
Quarter: 2013Q2

REPORT INFORMATION
  Report Type: Spontaneous
  Country: US (occurrence: None)
  Receive Date: 20130404
  Receipt Date: 20130404
  Transmission Date: 20140414
  Serious: Yes (Other)
  Sender: FDA-Public Use
  Company Number: None

PATIENT
  Sex: Female
  Weight: 125.19 kg

DRUGS (4)
  1. VERAPAMIL [Suspect]
     Indication: SUPRAVENTRICULAR TACHYCARDIA
     Dosage: ONE PO DAILY
     Route: 048
     Dates: start: 20070208, end: 20070405
  2. VERAPAMIL [Suspect]
     Indication: SUPRAVENTRICULAR TACHYCARDIA
     Dosage: ONE PO DAILY
     Route: 048
     Dates: start: 20121108, end: 20121205
  3. DILTIAZEM [Concomitant]
  4. CARDIZEM ER [Concomitant]

REACTIONS (2)
  - Palpitations [None]
  - No therapeutic response [None]
